FAERS Safety Report 12197716 (Version 1)
Quarter: 2016Q1

REPORT INFORMATION
  Report Type: Spontaneous
  Country: US (occurrence: None)
  Receive Date: 20160321
  Receipt Date: 20160321
  Transmission Date: 20160526
  Serious: No
  Sender: FDA-Public Use
  Company Number: None

PATIENT
  Age: 32 Year
  Sex: Female
  Weight: 58.97 kg

DRUGS (1)
  1. KENALOG [Suspect]
     Active Substance: TRIAMCINOLONE ACETONIDE
     Indication: MYALGIA
     Route: 030
     Dates: start: 20160105, end: 20160126

REACTIONS (10)
  - Irritability [None]
  - Flushing [None]
  - Menstruation irregular [None]
  - Injection site reaction [None]
  - Acne [None]
  - Depressed mood [None]
  - Swelling face [None]
  - Muscle spasms [None]
  - Mood swings [None]
  - Local swelling [None]

NARRATIVE: CASE EVENT DATE: 20160126
